FAERS Safety Report 7663092-2 (Version None)
Quarter: 2011Q3

REPORT INFORMATION
  Report Type: 
  Country: None (occurrence: None)
  Receive Date: 20110805
  Receipt Date: 20100921
  Transmission Date: 20111222
  Serious: No
  Sender: FDA-Public Use
  Company Number: US-ABBOTT-10P-163-0672269-00

PATIENT
  Sex: Male

DRUGS (4)
  1. UNKNOWN CHOLESTEROL MEDICATION [Concomitant]
     Indication: BLOOD CHOLESTEROL
  2. ASPIRIN [Concomitant]
     Indication: PRODUCT USED FOR UNKNOWN INDICATION
     Dosage: AT BEDTIME
  3. NIASPAN [Suspect]
     Indication: BLOOD TRIGLYCERIDES INCREASED
  4. LIPITOR [Concomitant]
     Indication: PRODUCT USED FOR UNKNOWN INDICATION

REACTIONS (2)
  - MYALGIA [None]
  - MUSCULOSKELETAL STIFFNESS [None]
